FAERS Safety Report 5054767-2 (Version None)
Quarter: 2006Q3

REPORT INFORMATION
  Report Type: 
  Country: None (occurrence: None)
  Receive Date: 20060719
  Receipt Date: 20040224
  Transmission Date: 20061208
  Serious: Yes (Life-Threatening, Hospitalization)
  Sender: FDA-Public Use
  Company Number: 200410598JP

PATIENT
  Age: 62 Year
  Sex: Female
  Weight: 45 kg

DRUGS (12)
  1. ARAVA [Suspect]
     Indication: RHEUMATOID ARTHRITIS
     Route: 048
     Dates: start: 20040117, end: 20040123
  2. ARAVA [Suspect]
     Route: 048
     Dates: start: 20040124, end: 20040209
  3. ARAVA [Suspect]
     Route: 048
     Dates: start: 20030801, end: 20040201
  4. ALLOPURINOL [Suspect]
     Route: 048
     Dates: start: 20020910, end: 20040220
  5. RHEUMATREX [Concomitant]
     Indication: RHEUMATOID ARTHRITIS
     Route: 048
     Dates: start: 19960601, end: 20040116
  6. RHEUMATREX [Concomitant]
     Route: 048
     Dates: start: 20040210, end: 20040215
  7. RHEUMATREX [Concomitant]
     Dates: start: 20040216, end: 20040219
  8. D-PENICILLAMINE [Concomitant]
     Indication: RHEUMATOID ARTHRITIS
     Route: 048
     Dates: start: 19931211, end: 20040219
  9. ALLOZYM [Concomitant]
     Indication: HYPERURICAEMIA
     Route: 048
     Dates: start: 19951202, end: 20040219
  10. PREDONINE [Concomitant]
     Indication: RHEUMATOID ARTHRITIS
     Route: 048
     Dates: start: 20040219, end: 20040219
  11. ALFAROL [Concomitant]
     Route: 048
     Dates: start: 20020910, end: 20040220
  12. ADALAT [Concomitant]
     Route: 048
     Dates: start: 20020910, end: 20040220

REACTIONS (7)
  - AGRANULOCYTOSIS [None]
  - ARRHYTHMIA [None]
  - DEHYDRATION [None]
  - DIARRHOEA [None]
  - PANCYTOPENIA [None]
  - RENAL IMPAIRMENT [None]
  - STOMATITIS [None]
